FAERS Safety Report 9262320 (Version 1)
Quarter: 2013Q2

REPORT INFORMATION
  Report Type: Spontaneous
  Country: US (occurrence: None)
  Receive Date: 20130425
  Receipt Date: 20130425
  Transmission Date: 20140414
  Serious: Yes (Other)
  Sender: FDA-Public Use
  Company Number: None

PATIENT
  Age: 37 Year
  Sex: Female
  Weight: 61.24 kg

DRUGS (1)
  1. NASAL CROM [Suspect]
     Dosage: 5.2 ML EACH SPRAY OF CHROMOLIN

REACTIONS (7)
  - Dizziness [None]
  - Cold sweat [None]
  - Nasal congestion [None]
  - Mucosal discolouration [None]
  - Epistaxis [None]
  - Chest discomfort [None]
  - Wheezing [None]
